FAERS Safety Report 13241247 (Version 1)
Quarter: 2017Q1

REPORT INFORMATION
  Report Type: Spontaneous
  Country: US (occurrence: US)
  Receive Date: 20170216
  Receipt Date: 20170216
  Transmission Date: 20170428
  Serious: Yes (Hospitalization)
  Sender: FDA-Public Use
  Company Number: US-SAOL THERAPEUTICS-2017SAO00305

PATIENT

DRUGS (1)
  1. COMPOUNDED BACLOFEN [Suspect]
     Active Substance: BACLOFEN
     Route: 037

REACTIONS (4)
  - Overdose [Unknown]
  - Lethargy [Unknown]
  - Incorrect route of drug administration [Unknown]
  - Device infusion issue [Unknown]

NARRATIVE: CASE EVENT DATE: 201702
